FAERS Safety Report 18393295 (Version 1)
Quarter: 2020Q4

REPORT INFORMATION
  Report Type: Spontaneous
  Country: GB (occurrence: GB)
  Receive Date: 20201016
  Receipt Date: 20201016
  Transmission Date: 20210114
  Serious: Yes (Hospitalization, Other)
  Sender: FDA-Public Use
  Company Number: GB-BRISTOL-MYERS SQUIBB COMPANY-BMS-2020-083604

PATIENT
  Age: 66 Year
  Sex: Female

DRUGS (4)
  1. CHLORHEXIDINE .5 % [Concomitant]
     Active Substance: CHLORHEXIDINE
     Indication: PRODUCT USED FOR UNKNOWN INDICATION
     Route: 061
  2. BUPIVACAINE 0.25% [Concomitant]
     Active Substance: BUPIVACAINE
     Indication: PRODUCT USED FOR UNKNOWN INDICATION
     Route: 014
  3. LIDOCAINE 1 % [Concomitant]
     Active Substance: LIDOCAINE
     Indication: PRODUCT USED FOR UNKNOWN INDICATION
     Dosage: 5 MILLILITER LOCALLY
     Route: 065
  4. TRIAMCINOLONE ACETONIDE. [Suspect]
     Active Substance: TRIAMCINOLONE ACETONIDE
     Indication: OSTEOARTHRITIS
     Dosage: NON-COMPOUNDED
     Route: 014

REACTIONS (3)
  - Femur fracture [Recovering/Resolving]
  - Arthritis bacterial [Recovering/Resolving]
  - Candida infection [Recovering/Resolving]
